FAERS Safety Report 7101464-5 (Version None)
Quarter: 2010Q4

REPORT INFORMATION
  Report Type: 
  Country: None (occurrence: None)
  Receive Date: 20101115
  Receipt Date: 20101101
  Transmission Date: 20110411
  Serious: Yes (Other)
  Sender: FDA-Public Use
  Company Number: PHHY2010DE74247

PATIENT
  Age: 77 Year
  Sex: Male

DRUGS (2)
  1. EXJADE [Suspect]
     Indication: ANAEMIA
     Dosage: 1000 MG, QD
     Route: 048
     Dates: start: 20091101
  2. EXJADE [Suspect]
     Dosage: 1000 MG, BID
     Route: 048

REACTIONS (3)
  - CORNEAL DEPOSITS [None]
  - CORNEAL DISORDER [None]
  - VISION BLURRED [None]
